FAERS Safety Report 19235465 (Version 1)
Quarter: 2021Q2

REPORT INFORMATION
  Report Type: Spontaneous
  Country: US (occurrence: US)
  Receive Date: 20210510
  Receipt Date: 20210510
  Transmission Date: 20210717
  Serious: No
  Sender: FDA-Public Use
  Company Number: US-ELI_LILLY_AND_COMPANY-US202105003135

PATIENT
  Age: 40 Year
  Sex: Female

DRUGS (1)
  1. TALTZ [Suspect]
     Active Substance: IXEKIZUMAB
     Indication: PRODUCT USED FOR UNKNOWN INDICATION
     Dosage: 80 MG, UNKNOWN
     Route: 058
     Dates: start: 20191121

REACTIONS (6)
  - Rhinorrhoea [Unknown]
  - Wheezing [Unknown]
  - Throat irritation [Unknown]
  - Cough [Unknown]
  - Injection site swelling [Unknown]
  - Dry throat [Unknown]

NARRATIVE: CASE EVENT DATE: 20210305
